FAERS Safety Report 9262083 (Version 3)
Quarter: 2013Q2

REPORT INFORMATION
  Report Type: Spontaneous
  Country: GB (occurrence: GB)
  Receive Date: 20130430
  Receipt Date: 20130509
  Transmission Date: 20140414
  Serious: Yes (Death)
  Sender: FDA-Public Use
  Company Number: GB-AMGEN-GBRSP2013029608

PATIENT
  Sex: Female

DRUGS (3)
  1. MIMPARA [Suspect]
     Indication: HYPERCALCAEMIA
  2. XGEVA [Suspect]
     Indication: HYPERCALCAEMIA
     Dosage: 120 MUG, QMO
  3. PROLIA [Suspect]
     Indication: HYPERCALCAEMIA
     Dosage: 60 MG, UNK

REACTIONS (4)
  - Parathyroid tumour malignant [Fatal]
  - Gastrointestinal disorder [Unknown]
  - Blood calcium abnormal [Recovered/Resolved]
  - Nausea [Unknown]
